FAERS Safety Report 12084945 (Version 1)
Quarter: 2016Q1

REPORT INFORMATION
  Report Type: Spontaneous
  Country: US (occurrence: US)
  Receive Date: 20160217
  Receipt Date: 20160217
  Transmission Date: 20160526
  Serious: No
  Sender: FDA-Public Use
  Company Number: US-PERRIGO-15US013661

PATIENT
  Age: 52 Year
  Sex: Female

DRUGS (3)
  1. HYDROQUINONE. [Suspect]
     Active Substance: HYDROQUINONE
     Indication: PRODUCT USED FOR UNKNOWN INDICATION
     Dosage: UNKNOWN, UNKNOWN
     Route: 061
  2. TRETINOIN. [Suspect]
     Active Substance: TRETINOIN
     Indication: SKIN WRINKLING
     Dosage: PEARL SIZE AMOUNT, EVERY THIRD NIGHT
     Route: 061
     Dates: start: 20151120, end: 201511
  3. TRETINOIN. [Suspect]
     Active Substance: TRETINOIN
     Dosage: PEARL SIZE AMOUNT, EVERY OTHER NIGHT
     Route: 061
     Dates: start: 201511

REACTIONS (1)
  - Lacrimation increased [Not Recovered/Not Resolved]

NARRATIVE: CASE EVENT DATE: 20151120
